FAERS Safety Report 8066744-8 (Version None)
Quarter: 2012Q1

REPORT INFORMATION
  Report Type: 
  Country: None (occurrence: None)
  Receive Date: 20120124
  Receipt Date: 20120117
  Transmission Date: 20120608
  Serious: No
  Sender: FDA-Public Use
  Company Number: US-B.I. PHARMACEUTICALS,INC./RIDGEFIELD-2012-BP-00959BP

PATIENT
  Age: 25 Year
  Sex: Female

DRUGS (2)
  1. ZANTAC [Suspect]
     Indication: GASTROOESOPHAGEAL REFLUX DISEASE
     Dosage: 300 MG
     Route: 048
     Dates: start: 20111101
  2. VITAMIN TAB [Concomitant]
     Indication: SUPPLEMENTATION THERAPY

REACTIONS (1)
  - DRUG LEVEL INCREASED [None]
